FAERS Safety Report 26146422 (Version 1)
Quarter: 2025Q4

REPORT INFORMATION
  Report Type: Spontaneous
  Country: EU (occurrence: EU)
  Receive Date: 20251211
  Receipt Date: 20251211
  Transmission Date: 20260117
  Serious: Yes (Other)
  Sender: NOVARTIS
  Company Number: None

PATIENT
  Age: 66 Year
  Sex: Female
  Weight: 75 kg

DRUGS (2)
  1. TRILEPTAL [Suspect]
     Active Substance: OXCARBAZEPINE
     Indication: Epilepsy
     Dosage: 600 MG
     Route: 048
     Dates: start: 202502, end: 202503
  2. TIANEPTINE SODIUM [Concomitant]
     Active Substance: TIANEPTINE SODIUM
     Indication: Adjustment disorder
     Dosage: 12.5 MG
     Route: 048
     Dates: start: 2024

REACTIONS (4)
  - Blindness [Recovered/Resolved]
  - Tremor [Recovered/Resolved]
  - Visual impairment [Recovered/Resolved]
  - Photopsia [Recovered/Resolved]

NARRATIVE: CASE EVENT DATE: 20250201
